FAERS Safety Report 6890100-9 (Version None)
Quarter: 2010Q3

REPORT INFORMATION
  Report Type: 
  Country: None (occurrence: None)
  Receive Date: 20100730
  Receipt Date: 20080805
  Transmission Date: 20110219
  Serious: No
  Sender: FDA-Public Use
  Company Number: US-PFIZER INC-2008065430

PATIENT
  Sex: Female

DRUGS (6)
  1. VIBRAMYCIN [Suspect]
     Indication: TOOTH INFECTION
     Route: 048
     Dates: start: 20080804, end: 20080804
  2. ERYTHROMYCIN [Suspect]
  3. DOXYCYCLINE [Suspect]
     Indication: TOOTH INFECTION
  4. VERAPAMIL [Concomitant]
  5. ACETAMINOPHEN [Concomitant]
  6. DOXYCYCLINE [Concomitant]
     Dates: end: 20080803

REACTIONS (4)
  - DRUG HYPERSENSITIVITY [None]
  - DYSPNOEA [None]
  - DYSURIA [None]
  - PARAESTHESIA ORAL [None]
